FAERS Safety Report 9526141 (Version 4)
Quarter: 2013Q4

REPORT INFORMATION
  Report Type: Spontaneous
  Country: US (occurrence: US)
  Receive Date: 20130916
  Receipt Date: 20131011
  Transmission Date: 20140711
  Serious: Yes (Hospitalization)
  Sender: FDA-Public Use
  Company Number: US-JNJFOC-20130904493

PATIENT
  Age: 66 Year
  Sex: Male
  Weight: 68.04 kg

DRUGS (14)
  1. ITRACONAZOLE [Suspect]
     Indication: ACUTE PULMONARY HISTOPLASMOSIS
     Route: 048
     Dates: start: 20130715, end: 20130722
  2. BENADRYL [Suspect]
     Indication: PRODUCT USED FOR UNKNOWN INDICATION
     Route: 065
  3. VORICONAZOLE [Suspect]
     Indication: HISTOPLASMOSIS
     Route: 065
  4. VITAMIN [Concomitant]
     Route: 065
  5. MAGNESIUM [Concomitant]
     Route: 065
  6. POTASSIUM [Concomitant]
     Indication: HYPOKALAEMIA
     Route: 065
  7. ASPIRIN [Concomitant]
     Indication: PRODUCT USED FOR UNKNOWN INDICATION
     Route: 065
     Dates: start: 20120705
  8. OMEGA 3 FISH OIL [Concomitant]
     Indication: HYPERLIPIDAEMIA
     Route: 048
  9. AREDS II FORMULA [Concomitant]
     Indication: MACULAR DEGENERATION
     Route: 065
  10. TYLENOL [Concomitant]
     Route: 065
  11. DULERA [Concomitant]
     Indication: CHRONIC OBSTRUCTIVE PULMONARY DISEASE
     Dosage: 100/5
     Route: 055
     Dates: start: 20130615
  12. SPIRIVA [Concomitant]
     Indication: CHRONIC OBSTRUCTIVE PULMONARY DISEASE
     Route: 055
  13. CALCIUM WITH VITAMIN D [Concomitant]
     Indication: PRODUCT USED FOR UNKNOWN INDICATION
     Route: 065
  14. MAG OX [Concomitant]
     Indication: PRODUCT USED FOR UNKNOWN INDICATION
     Route: 065
     Dates: start: 20130707

REACTIONS (3)
  - Dyspnoea [Recovering/Resolving]
  - Dysgraphia [Recovered/Resolved]
  - Rash [Recovered/Resolved]
